FAERS Safety Report 8918898 (Version 2)
Quarter: 2012Q4

REPORT INFORMATION
  Report Type: 
  Country: JP (occurrence: JP)
  Receive Date: 20121121
  Receipt Date: 20121126
  Transmission Date: 20130627
  Serious: Yes (Other)
  Sender: FDA-Public Use
  Company Number: JP-JNJFOC-20121107091

PATIENT
  Age: 95 Year

DRUGS (6)
  1. RISPERDAL [Suspect]
     Indication: AGITATION
     Route: 048
  2. RISPERDAL [Suspect]
     Indication: AGITATION
     Route: 048
  3. RISPERDAL [Suspect]
     Indication: AGITATION
     Route: 048
  4. RISPERIDONE [Suspect]
     Indication: AGITATION
     Route: 048
  5. RISPERIDONE [Suspect]
     Indication: AGITATION
     Route: 048
  6. RISPERIDONE [Suspect]
     Indication: AGITATION
     Route: 048

REACTIONS (3)
  - Decreased interest [Recovered/Resolved]
  - Oxygen supplementation [Recovered/Resolved]
  - Drug ineffective [Unknown]
